FAERS Safety Report 14952218 (Version 1)
Quarter: 2018Q2

REPORT INFORMATION
  Report Type: Spontaneous
  Country: US (occurrence: US)
  Receive Date: 20180530
  Receipt Date: 20180530
  Transmission Date: 20180711
  Serious: No
  Sender: FDA-Public Use
  Company Number: US-PFIZER INC-2018021955

PATIENT
  Age: 75 Year
  Sex: Female
  Weight: 91 kg

DRUGS (1)
  1. XALKORI [Suspect]
     Active Substance: CRIZOTINIB
     Indication: LUNG ADENOCARCINOMA
     Dosage: 200 MG, 2X/DAY(TWICE DAILY IN THE MORNING AND NIGHT)
     Route: 048

REACTIONS (2)
  - Drug dose omission [Unknown]
  - Neoplasm progression [Unknown]

NARRATIVE: CASE EVENT DATE: 20180520
